FAERS Safety Report 24550023 (Version 1)
Quarter: 2024Q4

REPORT INFORMATION
  Report Type: Spontaneous
  Country: US (occurrence: US)
  Receive Date: 20241025
  Receipt Date: 20241025
  Transmission Date: 20250115
  Serious: Yes (Life-Threatening)
  Sender: CB FLEET
  Company Number: US-PRESTIGE-202410-US-003423

PATIENT

DRUGS (1)
  1. MONISTAT 7 COMBINATION PACK [Suspect]
     Active Substance: MICONAZOLE NITRATE
     Indication: Product used for unknown indication
     Dosage: UNKNOWN DOSE

REACTIONS (1)
  - Urosepsis [Unknown]
